FAERS Safety Report 8391265-2 (Version None)
Quarter: 2012Q2

REPORT INFORMATION
  Report Type: 
  Country: None (occurrence: None)
  Receive Date: 20120529
  Receipt Date: 20120522
  Transmission Date: 20120825
  Serious: Yes (Other)
  Sender: FDA-Public Use
  Company Number: US-BAYER-2012-002375

PATIENT
  Age: 27 Year
  Sex: Female
  Weight: 70.295 kg

DRUGS (3)
  1. TINDAMAX [Concomitant]
     Dosage: 500 MG, UNK
     Route: 048
     Dates: start: 20090129
  2. DROSPIRENONE AND ETHINYL ESTRADIOL [Suspect]
     Indication: CONTRACEPTION
     Dosage: UNK
     Dates: start: 20081101, end: 20090601
  3. GLYCOPYRROLATE [Concomitant]
     Dosage: 2 MG, UNK
     Route: 048
     Dates: start: 20090107

REACTIONS (4)
  - GALLBLADDER DISORDER [None]
  - CHOLELITHIASIS [None]
  - PAIN [None]
  - MENTAL DISORDER [None]
